FAERS Safety Report 16822161 (Version 1)
Quarter: 2019Q3

REPORT INFORMATION
  Report Type: Spontaneous
  Country: US (occurrence: US)
  Receive Date: 20190726
  Receipt Date: 20190726
  Transmission Date: 20191005
  Serious: Yes (Disabling)
  Sender: FDA-Public Use
  Company Number: None

PATIENT
  Age: 69 Year
  Sex: Male
  Weight: 86.18 kg

DRUGS (8)
  1. NATURAL OPHTHALMICS TEAR STIMULATION FORTE HOMEOPATHIC EYE DROPS [Suspect]
     Active Substance: HOMEOPATHICS
     Indication: DRY EYE
     Dosage: ?          QUANTITY:1-3 DROPS;?
     Route: 047
     Dates: start: 20190601, end: 20190701
  2. TOBRAMYCIN. [Concomitant]
     Active Substance: TOBRAMYCIN
  3. OMEGA FISH OIL [Concomitant]
     Active Substance: FISH OIL\OMEGA-3 FATTY ACIDS
  4. MULTI VIT [Concomitant]
     Active Substance: VITAMINS
  5. DEXAMETHASONE EYE DROPS [Concomitant]
  6. ANTIOXIDANT [Concomitant]
     Active Substance: UNSPECIFIED INGREDIENT
  7. VIT D [Concomitant]
     Active Substance: VITAMIN D NOS
  8. PROSTATE + LUNG GLANDULAR [Concomitant]

REACTIONS (1)
  - Eye infection bacterial [None]

NARRATIVE: CASE EVENT DATE: 20190601
